APPROVED DRUG PRODUCT: GLYBURIDE AND METFORMIN HYDROCHLORIDE
Active Ingredient: GLYBURIDE; METFORMIN HYDROCHLORIDE
Strength: 5MG;500MG
Dosage Form/Route: TABLET;ORAL
Application: A079009 | Product #003 | TE Code: AB
Applicant: HERITAGE PHARMACEUTICALS INC DBA AVET PHARMACEUTICALS INC
Approved: Jun 3, 2009 | RLD: No | RS: No | Type: RX